FAERS Safety Report 9122876 (Version 1)
Quarter: 2013Q1

REPORT INFORMATION
  Report Type: Spontaneous
  Country: US (occurrence: US)
  Receive Date: 20130227
  Receipt Date: 20130227
  Transmission Date: 20140127
  Serious: Yes (Other)
  Sender: FDA-Public Use
  Company Number: US-TEVA-387993USA

PATIENT
  Sex: Male

DRUGS (1)
  1. NUVIGIL [Suspect]

REACTIONS (4)
  - Drug withdrawal syndrome [Unknown]
  - Prescribed overdose [Unknown]
  - Fatigue [Unknown]
  - Drug ineffective [Unknown]
